FAERS Safety Report 6023264-X (Version None)
Quarter: 2008Q4

REPORT INFORMATION
  Report Type: 
  Country: None (occurrence: None)
  Receive Date: 20081224
  Receipt Date: 20081224
  Transmission Date: 20090506
  Serious: Yes (Other)
  Sender: FDA-Public Use
  Company Number: None

PATIENT
  Sex: Female
  Weight: 145.151 kg

DRUGS (1)
  1. LYRICA [Suspect]
     Indication: NEURALGIA
     Dosage: 1 TABLET ONCE BEFORE BED PO
     Route: 048
     Dates: start: 20081217, end: 20081222

REACTIONS (3)
  - AFFECT LABILITY [None]
  - CRYING [None]
  - HORMONE LEVEL ABNORMAL [None]
